FAERS Safety Report 23658885 (Version 2)
Quarter: 2024Q1

REPORT INFORMATION
  Report Type: Report from Study
  Country: IL (occurrence: IL)
  Receive Date: 20240321
  Receipt Date: 20240329
  Transmission Date: 20240410
  Serious: Yes (Hospitalization)
  Sender: FDA-Public Use
  Company Number: IL-002147023-NVSC2024IL048791

PATIENT
  Age: 53 Year
  Sex: Male

DRUGS (3)
  1. SANDOSTATIN LAR DEPOT [Suspect]
     Active Substance: OCTREOTIDE ACETATE
     Indication: Neuroendocrine tumour
     Dosage: 30 MG, Q4W (ROUTE: INTRAGLUTEAL)
     Route: 030
     Dates: start: 20230209
  2. SANDOSTATIN LAR DEPOT [Suspect]
     Active Substance: OCTREOTIDE ACETATE
     Dosage: UNK
     Route: 065
     Dates: start: 20230314
  3. SANDOSTATIN LAR DEPOT [Suspect]
     Active Substance: OCTREOTIDE ACETATE
     Dosage: UNK
     Route: 065
     Dates: start: 20240206

REACTIONS (4)
  - Urinary tract infection [Not Recovered/Not Resolved]
  - Pyrexia [Unknown]
  - Asthenia [Unknown]
  - Infection [Unknown]

NARRATIVE: CASE EVENT DATE: 20240301
